FAERS Safety Report 7439532-0 (Version None)
Quarter: 2011Q2

REPORT INFORMATION
  Report Type: 
  Country: None (occurrence: None)
  Receive Date: 20110427
  Receipt Date: 20110422
  Transmission Date: 20111010
  Serious: Yes (Hospitalization)
  Sender: FDA-Public Use
  Company Number: IT-SANOFI-AVENTIS-2011SA021736

PATIENT
  Age: 71 Year
  Sex: Female

DRUGS (3)
  1. KETEK [Suspect]
     Indication: PAIN
     Route: 048
     Dates: start: 20110310, end: 20110310
  2. LORAZEPAM [Concomitant]
     Route: 048
  3. AMITRIPTILINA [Concomitant]
     Route: 065

REACTIONS (5)
  - OFF LABEL USE [None]
  - CONFUSIONAL STATE [None]
  - AGITATION [None]
  - SOPOR [None]
  - DYSARTHRIA [None]
